FAERS Safety Report 16650404 (Version 1)
Quarter: 2019Q3

REPORT INFORMATION
  Report Type: Spontaneous
  Country: SG (occurrence: SG)
  Receive Date: 20190731
  Receipt Date: 20190731
  Transmission Date: 20191004
  Serious: Yes (Other)
  Sender: FDA-Public Use
  Company Number: SG-VISTAPHARM, INC.-VER201907-000701

PATIENT
  Age: 26 Year
  Sex: Male

DRUGS (1)
  1. PHENYTOIN. [Suspect]
     Active Substance: PHENYTOIN
     Indication: EPILEPSY
     Dosage: LOADING DOSE OF 1 GRAM OF PHENYTOIN DILUTED TO 250 ML OF NORMAL SALINE
     Route: 042

REACTIONS (2)
  - Administration site necrosis [Unknown]
  - Administration site extravasation [Unknown]
